FAERS Safety Report 5480983-1 (Version None)
Quarter: 2007Q4

REPORT INFORMATION
  Report Type: 
  Country: None (occurrence: None)
  Receive Date: 20071004
  Receipt Date: 20070924
  Transmission Date: 20080405
  Serious: Yes (Other)
  Sender: FDA-Public Use
  Company Number: GB-GDP-0715413

PATIENT
  Age: 41 Year
  Sex: Female

DRUGS (1)
  1. METVIXIA [Suspect]
     Dosage: 1 APP ONCE TP
     Route: 061
     Dates: start: 20070712, end: 20070712

REACTIONS (9)
  - CHEILITIS [None]
  - ERYTHEMA [None]
  - LIP SWELLING [None]
  - PAIN OF SKIN [None]
  - POST INFLAMMATORY PIGMENTATION CHANGE [None]
  - SCAB [None]
  - SCAR [None]
  - SKIN BURNING SENSATION [None]
  - SKIN SWELLING [None]
